FAERS Safety Report 6617216-6 (Version None)
Quarter: 2010Q1

REPORT INFORMATION
  Report Type: 
  Country: None (occurrence: None)
  Receive Date: 20100307
  Receipt Date: 20081104
  Transmission Date: 20100710
  Serious: No
  Sender: FDA-Public Use
  Company Number: US-BAYER-200837523NA

PATIENT
  Age: 58 Year
  Sex: Male

DRUGS (6)
  1. CIPROXAN [Suspect]
     Indication: DRUG USE FOR UNKNOWN INDICATION
     Dates: start: 20081008
  2. ENTECAVIR [Concomitant]
     Dates: start: 20070128, end: 20081004
  3. CEFAZOLIN [Concomitant]
     Dates: start: 20081006
  4. AMOXICILLIN [Concomitant]
     Dates: start: 20081008
  5. CLEXANE [Concomitant]
     Dates: start: 20081002
  6. ASPIRIN [Concomitant]
     Dates: start: 20081002

REACTIONS (2)
  - HAEMATURIA [None]
  - HAEMOLYTIC ANAEMIA [None]
